FAERS Safety Report 7528831-X (Version None)
Quarter: 2011Q2

REPORT INFORMATION
  Report Type: 
  Country: None (occurrence: None)
  Receive Date: 20110607
  Receipt Date: 20100514
  Transmission Date: 20111010
  Serious: No
  Sender: FDA-Public Use
  Company Number: US-ASTRAZENECA-2010SE23425

PATIENT
  Sex: Female

DRUGS (5)
  1. ASPIRIN [Concomitant]
     Dosage: UNKNOWN
  2. PRILOSEC OTC [Suspect]
     Route: 048
     Dates: end: 20100510
  3. BLOOD PRESSURE MEDICATION [Concomitant]
     Dosage: UNKNOWN
  4. CARDIAC THERAPY [Concomitant]
     Dosage: UNKNOWN
  5. DIURETICS [Concomitant]
     Dosage: UNKNOWN

REACTIONS (1)
  - FAECES DISCOLOURED [None]
